FAERS Safety Report 20223920 (Version 1)
Quarter: 2021Q4

REPORT INFORMATION
  Report Type: Other
  Country: None (occurrence: JP)
  Receive Date: 20211223
  Receipt Date: 20211223
  Transmission Date: 20220303
  Serious: Yes (Hospitalization, Other)
  Sender: FDA-Public Use
  Company Number: JP-Appco Pharma LLC-2123332

PATIENT
  Age: 26 Year
  Sex: Female

DRUGS (2)
  1. METRONIDAZOLE [Suspect]
     Active Substance: METRONIDAZOLE
     Indication: Product used for unknown indication
     Route: 065
  2. CEFDINIR [Concomitant]
     Active Substance: CEFDINIR
     Route: 065

REACTIONS (1)
  - Drug ineffective [Unknown]
